FAERS Safety Report 11683794 (Version 2)
Quarter: 2015Q4

REPORT INFORMATION
  Report Type: Spontaneous
  Country: US (occurrence: US)
  Receive Date: 20151029
  Receipt Date: 20151211
  Transmission Date: 20160304
  Serious: Yes (Other)
  Sender: FDA-Public Use
  Company Number: US-ROCHE-1491616

PATIENT
  Sex: Female

DRUGS (1)
  1. HERCEPTIN [Suspect]
     Active Substance: TRASTUZUMAB
     Indication: HER-2 POSITIVE BREAST CANCER
     Route: 065
     Dates: start: 20140114, end: 20141231

REACTIONS (8)
  - Neuropathy peripheral [Not Recovered/Not Resolved]
  - Hemiparesis [Recovered/Resolved]
  - VIIth nerve paralysis [Recovered/Resolved]
  - Blood pressure decreased [Unknown]
  - Hypoaesthesia [Not Recovered/Not Resolved]
  - Blood magnesium decreased [Not Recovered/Not Resolved]
  - Amnesia [Unknown]
  - Transient ischaemic attack [Not Recovered/Not Resolved]
